FAERS Safety Report 7469424-2 (Version None)
Quarter: 2011Q2

REPORT INFORMATION
  Report Type: 
  Country: None (occurrence: None)
  Receive Date: 20110510
  Receipt Date: 20110407
  Transmission Date: 20111010
  Serious: Yes (Hospitalization)
  Sender: FDA-Public Use
  Company Number: US-BAYER-201036948NA

PATIENT
  Age: 49 Year
  Sex: Female
  Weight: 75.737 kg

DRUGS (7)
  1. VENTOLIN [Concomitant]
     Indication: ASTHMA
     Dosage: UNK UNK, PRN
  2. CLINORIL [Concomitant]
     Dosage: 200 MG, BID
     Route: 048
  3. TYLENOL WITH CODEIN #3 [Concomitant]
     Indication: JOINT SWELLING
     Dosage: UNK
     Dates: start: 20081003
  4. YAZ [Suspect]
     Indication: HORMONE REPLACEMENT THERAPY
  5. THEOPHYLLINE [Concomitant]
     Indication: ASTHMA
     Dosage: 300 MG, BID
     Route: 048
  6. YAZ [Suspect]
     Indication: ORAL CONTRACEPTION
     Dosage: UNK UNK, UNK
     Route: 048
     Dates: start: 20080701, end: 20081101
  7. CELEXA [Concomitant]
     Dosage: 20 MG, UNK
     Route: 048

REACTIONS (1)
  - DEEP VEIN THROMBOSIS [None]
